FAERS Safety Report 8094480-0 (Version None)
Quarter: 2012Q1

REPORT INFORMATION
  Report Type: 
  Country: None (occurrence: None)
  Receive Date: 20120130
  Receipt Date: 20120116
  Transmission Date: 20120608
  Serious: Yes (Hospitalization)
  Sender: FDA-Public Use
  Company Number: JP-ELI_LILLY_AND_COMPANY-JP201201004919

PATIENT
  Age: 55 Year
  Sex: Female

DRUGS (6)
  1. ZYPREXA [Suspect]
     Indication: SCHIZOPHRENIA
     Dosage: UNK
     Route: 048
  2. RISPERDAL [Concomitant]
     Indication: SCHIZOPHRENIA
     Route: 048
  3. ACETAMINOPHEN [Concomitant]
     Indication: NASOPHARYNGITIS
     Dosage: UNK
     Route: 048
     Dates: start: 20111228, end: 20111229
  4. RISPERDAL [Concomitant]
     Dosage: 3 MG, QD
     Route: 048
     Dates: start: 20111226, end: 20111229
  5. ZYPREXA [Suspect]
     Dosage: 5 MG, QD
     Route: 048
     Dates: start: 20111226, end: 20111229
  6. DEPAKENE [Concomitant]
     Indication: SCHIZOPHRENIA
     Dosage: UNK
     Route: 048

REACTIONS (2)
  - HEPATITIS FULMINANT [None]
  - NASOPHARYNGITIS [None]
